FAERS Safety Report 9938371 (Version 2)
Quarter: 2014Q1

REPORT INFORMATION
  Report Type: Report from Study
  Country: US (occurrence: US)
  Receive Date: 20140303
  Receipt Date: 20140303
  Transmission Date: 20141002
  Serious: No
  Sender: FDA-Public Use
  Company Number: US-ABBVIE-12P-163-1016897-00

PATIENT
  Sex: Female
  Weight: 61.29 kg

DRUGS (6)
  1. HUMIRA [Suspect]
     Indication: RHEUMATOID ARTHRITIS
     Dosage: UNKNOWN
     Dates: start: 201208
  2. HUMIRA [Suspect]
     Dosage: UNKNOWN
     Dates: start: 201209, end: 201301
  3. B12-VITAMIN [Suspect]
  4. ASPIRIN [Concomitant]
  5. CALCIUM WITH VITAMIN D [Concomitant]
  6. PREDNISONE [Concomitant]

REACTIONS (1)
  - Drug ineffective [Not Recovered/Not Resolved]
